FAERS Safety Report 24294484 (Version 14)
Quarter: 2025Q2

REPORT INFORMATION
  Report Type: Spontaneous
  Country: PL (occurrence: PL)
  Receive Date: 20240906
  Receipt Date: 20250530
  Transmission Date: 20250717
  Serious: Yes (Hospitalization, Other)
  Sender: Kenvue
  Company Number: PL-JNJFOC-20240900766

PATIENT

DRUGS (62)
  1. ACETAMINOPHEN [Interacting]
     Active Substance: ACETAMINOPHEN
     Indication: Oropharyngeal pain
     Dosage: 1 G, TID FREQUENCY: 1 FREQUENCY TIME: 8 FREQUENCY TIME UNIT: HOURS
     Route: 048
  2. ACETAMINOPHEN [Interacting]
     Active Substance: ACETAMINOPHEN
     Indication: Throat irritation
  3. ACETAMINOPHEN [Interacting]
     Active Substance: ACETAMINOPHEN
     Indication: Dysphagia
  4. ZOLPIDEM [Interacting]
     Active Substance: ZOLPIDEM TARTRATE
     Indication: Depression
     Route: 065
  5. ZOLPIDEM [Interacting]
     Active Substance: ZOLPIDEM TARTRATE
     Indication: Insomnia
  6. ZOLPIDEM [Interacting]
     Active Substance: ZOLPIDEM TARTRATE
     Indication: Mental disorder
  7. ZOLPIDEM [Interacting]
     Active Substance: ZOLPIDEM TARTRATE
     Indication: Weight increased
  8. AMLODIPINE [Interacting]
     Active Substance: AMLODIPINE BESYLATE
     Indication: Hypertension
     Dosage: 10 MILLIGRAM, ONCE A DAY
     Route: 065
  9. SERTRALINE [Interacting]
     Active Substance: SERTRALINE HYDROCHLORIDE
     Indication: Depression
     Dosage: 100 MG/D IN THE MORNING
     Route: 065
  10. SERTRALINE [Interacting]
     Active Substance: SERTRALINE HYDROCHLORIDE
     Indication: Insomnia
     Dosage: 100 MILLIGRAM, QD, IN THE MORNING
     Route: 065
  11. RAMIPRIL [Interacting]
     Active Substance: RAMIPRIL
     Indication: Hypertension
     Dosage: 10 MG, QD
     Route: 065
  12. DICLOFENAC [Interacting]
     Active Substance: DICLOFENAC
     Indication: Oropharyngeal pain
     Route: 065
  13. DICLOFENAC [Interacting]
     Active Substance: DICLOFENAC
     Indication: Dysphagia
  14. DICLOFENAC [Interacting]
     Active Substance: DICLOFENAC
     Indication: Throat irritation
  15. BUPROPION [Interacting]
     Active Substance: BUPROPION
     Indication: Insomnia
     Route: 065
  16. BUPROPION [Interacting]
     Active Substance: BUPROPION
     Indication: Depression
  17. AMOXICILLIN [Interacting]
     Active Substance: AMOXICILLIN
     Indication: Throat irritation
     Dosage: 1 G, TID FREQUENCY: 1 FREQUENCY TIME: 8 FREQUENCY TIME UNIT: HOURS
     Route: 048
  18. AMOXICILLIN [Interacting]
     Active Substance: AMOXICILLIN
     Indication: Dysphagia
  19. AMOXICILLIN [Interacting]
     Active Substance: AMOXICILLIN
     Indication: Oropharyngeal pain
  20. AMBROXOL [Suspect]
     Active Substance: AMBROXOL
     Indication: Mental disorder
     Route: 065
  21. AMBROXOL [Suspect]
     Active Substance: AMBROXOL
     Indication: Neuralgia
     Route: 065
  22. AMBROXOL [Suspect]
     Active Substance: AMBROXOL
     Indication: Oropharyngeal pain
  23. LIDOCAINE HYDROCHLORIDE [Suspect]
     Active Substance: LIDOCAINE HYDROCHLORIDE
     Indication: Dysphagia
     Route: 065
  24. LIDOCAINE HYDROCHLORIDE [Suspect]
     Active Substance: LIDOCAINE HYDROCHLORIDE
     Indication: Throat irritation
  25. LIDOCAINE HYDROCHLORIDE [Suspect]
     Active Substance: LIDOCAINE HYDROCHLORIDE
     Indication: Oropharyngeal pain
  26. NALTREXONE [Suspect]
     Active Substance: NALTREXONE
     Indication: Insomnia
     Route: 065
  27. NALTREXONE [Suspect]
     Active Substance: NALTREXONE
     Indication: Depression
  28. SEMAGLUTIDE [Suspect]
     Active Substance: SEMAGLUTIDE
     Indication: Insomnia
     Route: 065
  29. SEMAGLUTIDE [Suspect]
     Active Substance: SEMAGLUTIDE
     Indication: Depression
  30. SEMAGLUTIDE [Suspect]
     Active Substance: SEMAGLUTIDE
     Indication: Weight increased
  31. SEMAGLUTIDE [Suspect]
     Active Substance: SEMAGLUTIDE
     Indication: Mental disorder
  32. MIRTAZAPINE [Interacting]
     Active Substance: MIRTAZAPINE
     Indication: Insomnia
     Dosage: 30 MG OF MIRTAZAPINE AT NIGHT
     Route: 065
  33. MIRTAZAPINE [Interacting]
     Active Substance: MIRTAZAPINE
     Indication: Depression
  34. BUPROPION HYDROCHLORIDE\NALTREXONE HYDROCHLORIDE [Suspect]
     Active Substance: BUPROPION HYDROCHLORIDE\NALTREXONE HYDROCHLORIDE
     Indication: Depression
     Route: 065
  35. BUPROPION HYDROCHLORIDE\NALTREXONE HYDROCHLORIDE [Suspect]
     Active Substance: BUPROPION HYDROCHLORIDE\NALTREXONE HYDROCHLORIDE
     Indication: Insomnia
  36. BUPROPION HYDROCHLORIDE\NALTREXONE HYDROCHLORIDE [Suspect]
     Active Substance: BUPROPION HYDROCHLORIDE\NALTREXONE HYDROCHLORIDE
     Indication: Weight control
  37. BUPROPION HYDROCHLORIDE\NALTREXONE HYDROCHLORIDE [Suspect]
     Active Substance: BUPROPION HYDROCHLORIDE\NALTREXONE HYDROCHLORIDE
     Indication: Mental disorder
  38. AMOXICILLIN\CLAVULANATE POTASSIUM [Interacting]
     Active Substance: AMOXICILLIN\CLAVULANATE POTASSIUM
     Indication: Oropharyngeal pain
     Dosage: FREQUENCY: 1 FREQUENCY TIME: 8 FREQUENCY TIME UNIT: HOURS
     Route: 048
  39. AMOXICILLIN\CLAVULANATE POTASSIUM [Interacting]
     Active Substance: AMOXICILLIN\CLAVULANATE POTASSIUM
     Indication: Dysphagia
     Route: 048
  40. AMOXICILLIN\CLAVULANATE POTASSIUM [Interacting]
     Active Substance: AMOXICILLIN\CLAVULANATE POTASSIUM
     Indication: Throat irritation
  41. KETOPROFEN [Suspect]
     Active Substance: KETOPROFEN
     Indication: Oropharyngeal pain
     Route: 042
  42. METAMIZOLE [Suspect]
     Active Substance: METAMIZOLE
     Indication: Oropharyngeal pain
     Route: 042
  43. DICLOFENAC\LIDOCAINE [Interacting]
     Active Substance: DICLOFENAC\LIDOCAINE
     Indication: Dysphagia
     Route: 065
  44. DICLOFENAC\LIDOCAINE [Interacting]
     Active Substance: DICLOFENAC\LIDOCAINE
     Indication: Throat irritation
  45. DICLOFENAC\LIDOCAINE [Interacting]
     Active Substance: DICLOFENAC\LIDOCAINE
     Indication: Oropharyngeal pain
  46. LIDOCAINE HYDROCHLORIDE [Suspect]
     Active Substance: LIDOCAINE HYDROCHLORIDE
     Indication: Dysphagia
     Route: 048
  47. LIDOCAINE HYDROCHLORIDE [Suspect]
     Active Substance: LIDOCAINE HYDROCHLORIDE
     Indication: Oropharyngeal pain
  48. LIDOCAINE HYDROCHLORIDE [Suspect]
     Active Substance: LIDOCAINE HYDROCHLORIDE
     Indication: Throat irritation
  49. MIRTAZAPINE [Concomitant]
     Active Substance: MIRTAZAPINE
     Indication: Insomnia
     Route: 065
  50. MIRTAZAPINE [Concomitant]
     Active Substance: MIRTAZAPINE
     Indication: Depression
  51. NALTREXONE [Concomitant]
     Active Substance: NALTREXONE
     Indication: Insomnia
     Route: 065
  52. NALTREXONE [Concomitant]
     Active Substance: NALTREXONE
     Indication: Depression
  53. SEMAGLUTIDE [Concomitant]
     Active Substance: SEMAGLUTIDE
     Indication: Insomnia
     Route: 065
  54. SEMAGLUTIDE [Concomitant]
     Active Substance: SEMAGLUTIDE
     Indication: Depression
  55. ALPHA LIPOIC ACID [Concomitant]
     Active Substance: .ALPHA.-LIPOIC ACID
     Indication: Product used for unknown indication
     Route: 042
  56. INDAPAMIDE [Concomitant]
     Active Substance: INDAPAMIDE
     Indication: Product used for unknown indication
     Route: 065
  57. TELMISARTAN [Concomitant]
     Active Substance: TELMISARTAN
     Indication: Product used for unknown indication
     Route: 065
  58. MAGNESIUM SULFATE [Concomitant]
     Active Substance: MAGNESIUM SULFATE
     Indication: Product used for unknown indication
     Route: 042
  59. DULOXETINE [Concomitant]
     Active Substance: DULOXETINE
     Indication: Product used for unknown indication
     Route: 065
  60. TIRZEPATIDE [Concomitant]
     Active Substance: TIRZEPATIDE
     Indication: Product used for unknown indication
     Route: 065
  61. TIRZEPATIDE [Concomitant]
     Active Substance: TIRZEPATIDE
  62. INDAPAMIDE\TELMISARTAN [Concomitant]
     Active Substance: INDAPAMIDE\TELMISARTAN
     Indication: Product used for unknown indication
     Route: 065

REACTIONS (17)
  - Oropharyngeal pain [Not Recovered/Not Resolved]
  - Drug interaction [Recovering/Resolving]
  - Dysphagia [Recovering/Resolving]
  - Pain [Recovering/Resolving]
  - Pain [Recovering/Resolving]
  - Throat irritation [Recovering/Resolving]
  - Condition aggravated [Recovering/Resolving]
  - Mental disorder [Unknown]
  - Medication error [Unknown]
  - Food interaction [Recovering/Resolving]
  - Burning sensation [Not Recovered/Not Resolved]
  - Emotional distress [Unknown]
  - Emotional distress [Unknown]
  - Increased appetite [Unknown]
  - Weight increased [Unknown]
  - Abdominal pain [Unknown]
  - Nausea [Unknown]
